FAERS Safety Report 11537526 (Version 2)
Quarter: 2015Q4

REPORT INFORMATION
  Report Type: Report from Study
  Country: DE (occurrence: DE)
  Receive Date: 20150922
  Receipt Date: 20151124
  Transmission Date: 20160304
  Serious: Yes (Hospitalization)
  Sender: FDA-Public Use
  Company Number: DE-INCYTE CORPORATION-2015IN003064

PATIENT
  Age: 79 Year
  Sex: Male
  Weight: 94 kg

DRUGS (19)
  1. LECANIDIPINE [Concomitant]
     Dosage: 5 MG, QD
  2. RAMIPRIL. [Concomitant]
     Active Substance: RAMIPRIL
     Dosage: 1-0-0
     Route: 065
  3. PANTOPRAZOLE [Concomitant]
     Active Substance: PANTOPRAZOLE SODIUM
     Route: 065
  4. JAKAFI [Suspect]
     Active Substance: RUXOLITINIB
     Indication: MYELOFIBROSIS
     Dosage: 15 MG, BID (1-0-1)
     Route: 065
     Dates: start: 20140613
  5. BISOPROL [Concomitant]
     Indication: PRODUCT USED FOR UNKNOWN INDICATION
     Dosage: 5 MG
     Route: 065
  6. BISOPROL [Concomitant]
     Dosage: 1-0-0
  7. PANTOPRAZOLE [Concomitant]
     Active Substance: PANTOPRAZOLE SODIUM
     Indication: PRODUCT USED FOR UNKNOWN INDICATION
     Route: 065
  8. PANTOPRAZOLE [Concomitant]
     Active Substance: PANTOPRAZOLE SODIUM
     Dosage: 40 MG, QD
     Route: 065
  9. ACC [Concomitant]
     Active Substance: ACETYLCYSTEINE
     Indication: PRODUCT USED FOR UNKNOWN INDICATION
     Dosage: 600 MG
     Route: 065
  10. ACC [Concomitant]
     Active Substance: ACETYLCYSTEINE
     Dosage: 600 MG, QD
  11. BERLTHYROX [Concomitant]
     Indication: PRODUCT USED FOR UNKNOWN INDICATION
     Dosage: 100 UG
     Route: 065
  12. BERLTHYROX [Concomitant]
     Dosage: 100 UG, QD
  13. LECANIDIPINE [Concomitant]
     Dosage: 0-0-1/4
  14. ACC [Concomitant]
     Active Substance: ACETYLCYSTEINE
     Dosage: 1-0-0
  15. RAMIPRIL. [Concomitant]
     Active Substance: RAMIPRIL
     Dosage: 5 MG, QD
     Route: 065
  16. LECANIDIPINE [Concomitant]
     Indication: PRODUCT USED FOR UNKNOWN INDICATION
     Dosage: 20 MG
     Route: 065
  17. BERLTHYROX [Concomitant]
     Dosage: 1-0-0
  18. BISOPROL [Concomitant]
     Dosage: 5 MG, QD
  19. RAMIPRIL. [Concomitant]
     Active Substance: RAMIPRIL
     Indication: PRODUCT USED FOR UNKNOWN INDICATION
     Dosage: 5 MG

REACTIONS (10)
  - Pleural effusion [Recovered/Resolved]
  - Pneumonia [Recovered/Resolved]
  - Deep vein thrombosis [Recovered/Resolved]
  - Haematochezia [Unknown]
  - Duodenogastric reflux [Unknown]
  - Gastritis [Unknown]
  - Anaemia [Unknown]
  - Pulmonary embolism [Recovered/Resolved]
  - Renal disorder [Recovering/Resolving]
  - Proctitis [Unknown]

NARRATIVE: CASE EVENT DATE: 2015
